FAERS Safety Report 5506747-8 (Version None)
Quarter: 2007Q4

REPORT INFORMATION
  Report Type: 
  Country: None (occurrence: None)
  Receive Date: 20071101
  Receipt Date: 20071005
  Transmission Date: 20080405
  Serious: No
  Sender: FDA-Public Use
  Company Number: 60679

PATIENT

DRUGS (2)
  1. IBUPROFEN [Suspect]
     Dosage: 200 MG
  2. TERFENADINE [Concomitant]

REACTIONS (1)
  - PERIORBITAL OEDEMA [None]
